FAERS Safety Report 6573446-3 (Version None)
Quarter: 2010Q1

REPORT INFORMATION
  Report Type: 
  Country: None (occurrence: None)
  Receive Date: 20100208
  Receipt Date: 20100201
  Transmission Date: 20100710
  Serious: Yes (Other)
  Sender: FDA-Public Use
  Company Number: US-SANOFI-AVENTIS-2010SA006552

PATIENT
  Age: 59 Year
  Sex: Male

DRUGS (3)
  1. PLAVIX [Suspect]
     Indication: ARTERIAL REPAIR
     Route: 048
     Dates: start: 19990101
  2. LANTUS [Concomitant]
     Dosage: DOSE FLUCTUATING BASED ON GLUCOSE READINGS
     Route: 058
     Dates: start: 20010101
  3. DRUG USED IN DIABETES [Concomitant]
     Route: 048
     Dates: start: 19990101

REACTIONS (3)
  - CARDIAC DISORDER [None]
  - GASTROOESOPHAGEAL REFLUX DISEASE [None]
  - VENOUS OCCLUSION [None]
